FAERS Safety Report 15811550 (Version 2)
Quarter: 2019Q2

REPORT INFORMATION
  Report Type: Spontaneous
  Country: US (occurrence: US)
  Receive Date: 20190111
  Receipt Date: 20190514
  Transmission Date: 20190711
  Serious: No
  Sender: FDA-Public Use
  Company Number: US-PFIZER INC-2019014023

PATIENT
  Age: 81 Year
  Sex: Female

DRUGS (2)
  1. FASLODEX [Concomitant]
     Active Substance: FULVESTRANT
     Dosage: UNK, MONTHLY (1 TIME A MONTH)
     Route: 042
     Dates: start: 2017
  2. IBRANCE [Suspect]
     Active Substance: PALBOCICLIB
     Indication: BREAST CANCER METASTATIC
     Dosage: 75 MG, CYCLIC(TAKE 1 CAPSULE BY MOUTH EVERY DAY FOR 21 DAYS AND OFF 7 DAYS)
     Dates: start: 2017

REACTIONS (1)
  - Accident [Unknown]
